FAERS Safety Report 16203835 (Version 1)
Quarter: 2019Q2

REPORT INFORMATION
  Report Type: Spontaneous
  Country: CO (occurrence: CO)
  Receive Date: 20190416
  Receipt Date: 20190416
  Transmission Date: 20190711
  Serious: Yes (Other)
  Sender: FDA-Public Use
  Company Number: CO-BAYER-2019-070739

PATIENT
  Age: 70 Year
  Sex: Male

DRUGS (5)
  1. CALCIUM CARBONATE. [Concomitant]
     Active Substance: CALCIUM CARBONATE
  2. ACETYLSALICYLIC ACID (CARDIO) [Suspect]
     Active Substance: ASPIRIN
  3. QUETIAPINE. [Concomitant]
     Active Substance: QUETIAPINE
  4. FLUOXETINE [Concomitant]
     Active Substance: FLUOXETINE HYDROCHLORIDE
  5. TALCID TABLETS FLAVOR CHERRY [Suspect]
     Active Substance: HYDROTALCITE
     Dosage: 2 DF, UNK

REACTIONS (5)
  - Vomiting [Unknown]
  - General physical health deterioration [Unknown]
  - Neck pain [Unknown]
  - Asthenia [Unknown]
  - Hyperhidrosis [Unknown]
